FAERS Safety Report 25498693 (Version 1)
Quarter: 2025Q3

REPORT INFORMATION
  Report Type: Spontaneous
  Country: EU (occurrence: EU)
  Receive Date: 20250701
  Receipt Date: 20250701
  Transmission Date: 20251020
  Serious: Yes (Death, Other)
  Sender: RANBAXY
  Company Number: EU-SUN PHARMACEUTICAL INDUSTRIES LTD-2025RR-514497

PATIENT
  Age: 43 Year
  Sex: Male

DRUGS (3)
  1. DOXORUBICIN HYDROCHLORIDE [Suspect]
     Active Substance: DOXORUBICIN HYDROCHLORIDE
     Indication: Kaposi^s sarcoma
     Route: 065
  2. PACLITAXEL [Suspect]
     Active Substance: PACLITAXEL
     Indication: Kaposi^s sarcoma
     Route: 065
  3. LEVOFLOXACIN [Suspect]
     Active Substance: LEVOFLOXACIN
     Indication: Kaposi^s sarcoma
     Dosage: 750 MILLIGRAM, DAILY
     Route: 065

REACTIONS (3)
  - Renal impairment [Fatal]
  - Clostridium difficile colitis [Unknown]
  - Bacterial infection [Unknown]
